FAERS Safety Report 16801945 (Version 2)
Quarter: 2019Q4

REPORT INFORMATION
  Report Type: Spontaneous
  Country: US (occurrence: US)
  Receive Date: 20190912
  Receipt Date: 20191217
  Transmission Date: 20200122
  Serious: Yes (Other)
  Sender: FDA-Public Use
  Company Number: US-ELI_LILLY_AND_COMPANY-US201909001080

PATIENT
  Age: 70 Year
  Sex: Male

DRUGS (10)
  1. LEVOTHYROXINE. [Concomitant]
     Active Substance: LEVOTHYROXINE
     Indication: HYPOTHYROIDISM
     Dosage: UNK
     Dates: start: 20140110, end: 20160801
  2. CEPHALEXIN [CEFALEXIN] [Concomitant]
     Active Substance: CEPHALEXIN
     Indication: ANTIBIOTIC THERAPY
     Dosage: UNK
     Dates: start: 20140502, end: 20160120
  3. WARFARIN [Concomitant]
     Active Substance: WARFARIN
     Indication: ANTIPLATELET THERAPY
     Dosage: UNK
     Dates: start: 20140217, end: 20160509
  4. DOXYCYCLINE HYCLATE. [Concomitant]
     Active Substance: DOXYCYCLINE HYCLATE
     Indication: ANTIBIOTIC THERAPY
     Dosage: UNK
     Dates: start: 20140812, end: 20150709
  5. CIALIS [Suspect]
     Active Substance: TADALAFIL
     Indication: ERECTILE DYSFUNCTION
     Dosage: 10 MG, 1 HOUR BEFORE SEXUAL ACTIVITY
     Route: 048
     Dates: start: 20070305, end: 20070405
  6. VIAGRA [Suspect]
     Active Substance: SILDENAFIL CITRATE
     Indication: ERECTILE DYSFUNCTION
     Dosage: 100 MG, 1 HOUR BEFORE SEXUAL ACTIVITY
     Route: 065
     Dates: start: 20070831, end: 200906
  7. HYDROCHLOROTHIAZIDE. [Concomitant]
     Active Substance: HYDROCHLOROTHIAZIDE
     Indication: DIURETIC THERAPY
     Dosage: UNK
     Dates: start: 20140303, end: 20160304
  8. METOPROLOL TARTRATE. [Concomitant]
     Active Substance: METOPROLOL TARTRATE
     Indication: HYPERTENSION
     Dosage: UNK
     Dates: start: 20140111, end: 20160328
  9. DESONIDE. [Concomitant]
     Active Substance: DESONIDE
     Indication: SKIN DISORDER
     Dosage: UNK
     Dates: start: 20140812, end: 20140812
  10. LISINOPRIL. [Concomitant]
     Active Substance: LISINOPRIL
     Indication: HYPERTENSION
     Dosage: UNK
     Dates: start: 20140213, end: 20160509

REACTIONS (3)
  - Basal cell carcinoma [Recovered/Resolved]
  - Malignant melanoma [Unknown]
  - Metastatic neoplasm [Unknown]

NARRATIVE: CASE EVENT DATE: 201003
